FAERS Safety Report 9366617 (Version 3)
Quarter: 2013Q3

REPORT INFORMATION
  Report Type: Spontaneous
  Country: US (occurrence: US)
  Receive Date: 20130625
  Receipt Date: 20130729
  Transmission Date: 20140515
  Serious: Yes (Death, Hospitalization)
  Sender: FDA-Public Use
  Company Number: US-GILEAD-2013-0077125

PATIENT
  Age: 57 Year
  Sex: Female

DRUGS (3)
  1. LETAIRIS [Suspect]
     Indication: PULMONARY HYPERTENSION
     Dosage: 5 MG, QD
     Dates: start: 20121019
  2. LETAIRIS [Suspect]
     Indication: SYSTEMIC SCLEROSIS
  3. REMODULIN [Concomitant]

REACTIONS (2)
  - Death [Fatal]
  - Pulmonary oedema [Unknown]
